FAERS Safety Report 6272190-X (Version None)
Quarter: 2009Q3

REPORT INFORMATION
  Report Type: 
  Country: None (occurrence: None)
  Receive Date: 20090715
  Receipt Date: 20090702
  Transmission Date: 20100115
  Serious: Yes (Death)
  Sender: FDA-Public Use
  Company Number: 2009AL002566

PATIENT
  Age: 46 Year
  Sex: Male

DRUGS (14)
  1. DIGOXIN [Suspect]
     Dosage: 0.25MG, DAILY, PO
     Route: 048
  2. ENALAPRIL MALEATE [Concomitant]
  3. AMOXICILLIN [Concomitant]
  4. IBUPROFEN [Concomitant]
  5. ASPIRIN [Concomitant]
  6. LISINOPRIL [Concomitant]
  7. FONDAPARINUX [Concomitant]
  8. METOPROLOL SUCCINATE [Concomitant]
  9. FAMOTIDINE [Concomitant]
  10. MAGNESIUM [Concomitant]
  11. PHOSPHORUS [Concomitant]
  12. PRAVASTATIN [Concomitant]
  13. NITROGLYCERIN [Concomitant]
  14. ACETAMINOPHEN AND HYDROCODONE BITARTRATE [Concomitant]

REACTIONS (3)
  - CHEST PAIN [None]
  - ECONOMIC PROBLEM [None]
  - INJURY [None]
